FAERS Safety Report 9091361 (Version 3)
Quarter: 2013Q2

REPORT INFORMATION
  Report Type: Spontaneous
  Country: IT (occurrence: IT)
  Receive Date: 20130131
  Receipt Date: 20130426
  Transmission Date: 20140414
  Serious: Yes (Other)
  Sender: FDA-Public Use
  Company Number: IT-JNJFOC-20130112200

PATIENT
  Age: 29 Year
  Sex: Female

DRUGS (30)
  1. TOPAMAX [Suspect]
     Indication: PERSONALITY DISORDER
     Dosage: 50 MG AT MORNING AND 75 MG AT EVENING
     Route: 048
  2. TOPAMAX [Suspect]
     Indication: PERSONALITY DISORDER
     Route: 048
     Dates: start: 20130114, end: 20130114
  3. TOPAMAX [Suspect]
     Indication: PERSONALITY DISORDER
     Dosage: UNKNOWN DOSAGE OF  TOPIRAMATE (TABLETS,50 MG)
     Route: 048
     Dates: start: 20130121, end: 20130121
  4. TOPAMAX [Suspect]
     Indication: DEPRESSION
     Dosage: 50 MG AT MORNING AND 75 MG AT EVENING
     Route: 048
  5. TOPAMAX [Suspect]
     Indication: DEPRESSION
     Route: 048
     Dates: start: 20130114, end: 20130114
  6. TOPAMAX [Suspect]
     Indication: DEPRESSION
     Dosage: UNKNOWN DOSAGE OF  TOPIRAMATE (TABLETS,50 MG)
     Route: 048
     Dates: start: 20130121, end: 20130121
  7. INVEGA [Suspect]
     Indication: PERSONALITY DISORDER
     Route: 048
     Dates: start: 20130121, end: 20130121
  8. INVEGA [Suspect]
     Indication: PERSONALITY DISORDER
     Route: 048
  9. INVEGA [Suspect]
     Indication: PERSONALITY DISORDER
     Route: 048
     Dates: start: 20130114, end: 20130114
  10. INVEGA [Suspect]
     Indication: DEPRESSION
     Route: 048
  11. INVEGA [Suspect]
     Indication: DEPRESSION
     Route: 048
     Dates: start: 20130114, end: 20130114
  12. INVEGA [Suspect]
     Indication: DEPRESSION
     Route: 048
     Dates: start: 20130121, end: 20130121
  13. CARBOLITHIUM [Suspect]
     Indication: PERSONALITY DISORDER
     Dosage: 300 MG/DAY AT MORNING AND AT EVENING AND 150 MG/DAY AT LUNCH
     Route: 048
  14. CARBOLITHIUM [Suspect]
     Indication: PERSONALITY DISORDER
     Route: 048
     Dates: start: 20130121, end: 20130121
  15. CARBOLITHIUM [Suspect]
     Indication: PERSONALITY DISORDER
     Route: 048
     Dates: start: 20130114, end: 20130114
  16. CARBOLITHIUM [Suspect]
     Indication: DEPRESSION
     Route: 048
     Dates: start: 20130114, end: 20130114
  17. CARBOLITHIUM [Suspect]
     Indication: DEPRESSION
     Dosage: 300 MG/DAY AT MORNING AND AT EVENING AND 150 MG/DAY AT LUNCH
     Route: 048
  18. CARBOLITHIUM [Suspect]
     Indication: DEPRESSION
     Route: 048
     Dates: start: 20130121, end: 20130121
  19. EUTIROX [Suspect]
     Indication: PERSONALITY DISORDER
     Route: 048
     Dates: start: 20130121, end: 20130121
  20. EUTIROX [Suspect]
     Indication: PERSONALITY DISORDER
     Route: 048
     Dates: start: 20130114, end: 20130114
  21. EUTIROX [Suspect]
     Indication: PERSONALITY DISORDER
     Dosage: 125 MG/DAY FROM MONDAY TO SATURDAY AND 50 MG/DAY ON SUNDAY
     Route: 048
  22. EUTIROX [Suspect]
     Indication: DEPRESSION
     Route: 048
     Dates: start: 20130114, end: 20130114
  23. EUTIROX [Suspect]
     Indication: DEPRESSION
     Route: 048
     Dates: start: 20130121, end: 20130121
  24. EUTIROX [Suspect]
     Indication: DEPRESSION
     Dosage: 125 MG/DAY FROM MONDAY TO SATURDAY AND 50 MG/DAY ON SUNDAY
     Route: 048
  25. DOSTINEX [Suspect]
     Indication: PERSONALITY DISORDER
     Dosage: MONDAY AND FRIDAY
     Route: 048
  26. DOSTINEX [Suspect]
     Indication: PERSONALITY DISORDER
     Route: 048
     Dates: start: 20130114, end: 20130114
  27. DOSTINEX [Suspect]
     Indication: PERSONALITY DISORDER
     Route: 048
     Dates: start: 20130121, end: 20130121
  28. DOSTINEX [Suspect]
     Indication: DEPRESSION
     Dosage: MONDAY AND FRIDAY
     Route: 048
  29. DOSTINEX [Suspect]
     Indication: DEPRESSION
     Route: 048
     Dates: start: 20130114, end: 20130114
  30. DOSTINEX [Suspect]
     Indication: DEPRESSION
     Route: 048
     Dates: start: 20130121, end: 20130121

REACTIONS (2)
  - Intentional overdose [Unknown]
  - Self injurious behaviour [Recovered/Resolved with Sequelae]
